FAERS Safety Report 16319906 (Version 1)
Quarter: 2019Q2

REPORT INFORMATION
  Report Type: Spontaneous
  Country: US (occurrence: US)
  Receive Date: 20190410
  Receipt Date: 20190410
  Transmission Date: 20190711
  Serious: No
  Sender: FDA-Public Use
  Company Number: None

PATIENT
  Age: 62 Year
  Sex: Female
  Weight: 89.81 kg

DRUGS (1)
  1. ESTRADIOL 0.1MG [Suspect]
     Active Substance: ESTRADIOL
     Indication: MENOPAUSAL SYMPTOMS
     Dosage: # 24 2 X WEEKLY PATCH
     Route: 061
     Dates: start: 201901

REACTIONS (1)
  - Alopecia [None]
